FAERS Safety Report 4886798-7 (Version None)
Quarter: 2006Q1

REPORT INFORMATION
  Report Type: 
  Country: None (occurrence: None)
  Receive Date: 20060119
  Receipt Date: 20060119
  Transmission Date: 20060701
  Serious: Yes (Other)
  Sender: FDA-Public Use
  Company Number: None

PATIENT
  Sex: Female
  Weight: 79.5 kg

DRUGS (6)
  1. GENOTROPIN [Suspect]
     Indication: GROWTH HORMONE DEFICIENCY
     Dosage: 0.9 MG  QD  SQ
     Route: 058
     Dates: start: 20050225, end: 20050725
  2. LEVOXYL [Concomitant]
  3. ORAL CONTRACEPTIVE [Concomitant]
  4. MULTIVITAMIN [Concomitant]
  5. ALLEGRA [Concomitant]
  6. IBUPROFEN [Concomitant]

REACTIONS (1)
  - MALIGNANT MELANOMA [None]
